FAERS Safety Report 16130499 (Version 2)
Quarter: 2019Q2

REPORT INFORMATION
  Report Type: Spontaneous
  Country: US (occurrence: US)
  Receive Date: 20190328
  Receipt Date: 20190628
  Transmission Date: 20190711
  Serious: No
  Sender: FDA-Public Use
  Company Number: US-INDIVIOR LIMITED-INDV-117765-2019

PATIENT
  Sex: Female

DRUGS (2)
  1. SUBLOCADE [Suspect]
     Active Substance: BUPRENORPHINE
     Indication: DRUG USE DISORDER
     Dosage: 300 MILLIGRAM, QMO
     Route: 065
     Dates: start: 20190125
  2. SUBOXONE [Suspect]
     Active Substance: BUPRENORPHINE HYDROCHLORIDE\NALOXONE HYDROCHLORIDE
     Indication: DRUG WITHDRAWAL SYNDROME
     Dosage: 8 MILLIGRAM, TID
     Route: 065

REACTIONS (6)
  - Injection site pain [Not Recovered/Not Resolved]
  - Drug withdrawal syndrome [Unknown]
  - Injection site inflammation [Not Recovered/Not Resolved]
  - Injection site erythema [Not Recovered/Not Resolved]
  - Inappropriate schedule of product administration [Unknown]
  - Injection site bruising [Not Recovered/Not Resolved]
